FAERS Safety Report 21876247 (Version 2)
Quarter: 2023Q1

REPORT INFORMATION
  Report Type: Spontaneous
  Country: US (occurrence: None)
  Receive Date: 20230118
  Receipt Date: 20230322
  Transmission Date: 20230418
  Serious: No
  Sender: FDA-Public Use
  Company Number: 2023A007279

PATIENT
  Sex: Male

DRUGS (7)
  1. SYMBICORT [Suspect]
     Active Substance: BUDESONIDE\FORMOTEROL FUMARATE DIHYDRATE
     Indication: Chronic obstructive pulmonary disease
     Dosage: 160/4.5MCG, 120 INHALATION INHALER, TWO PUFFS TWICE A DAY, BY INHALATION
     Route: 055
  2. SPIRIVA [Concomitant]
     Active Substance: TIOTROPIUM BROMIDE MONOHYDRATE
  3. LISINOPRIL [Concomitant]
     Active Substance: LISINOPRIL
  4. PRAVASTATIN [Concomitant]
     Active Substance: PRAVASTATIN
  5. VITAMINS [Concomitant]
     Active Substance: VITAMINS
  6. VITAMIN D [Concomitant]
     Active Substance: VITAMIN D NOS
  7. METFORMIN [Concomitant]
     Active Substance: METFORMIN HYDROCHLORIDE

REACTIONS (5)
  - Body height decreased [Not Recovered/Not Resolved]
  - Drug dose omission by device [Not Recovered/Not Resolved]
  - Device use issue [Unknown]
  - Wrong technique in product usage process [Unknown]
  - Device malfunction [Unknown]
